FAERS Safety Report 7952557-1 (Version None)
Quarter: 2011Q4

REPORT INFORMATION
  Report Type: 
  Country: None (occurrence: None)
  Receive Date: 20111201
  Receipt Date: 20111122
  Transmission Date: 20120403
  Serious: Yes (Hospitalization, Other)
  Sender: FDA-Public Use
  Company Number: PHHO2010US11609

PATIENT
  Sex: Female

DRUGS (10)
  1. AFINITOR [Suspect]
     Dosage: 10 MG, QD
     Route: 048
     Dates: start: 20100803
  2. BLINDED PLACEBO [Suspect]
     Dosage: 10 MG, QD
     Route: 048
     Dates: start: 20100803
  3. PACLITAXEL [Suspect]
     Dosage: UNK
     Route: 042
     Dates: start: 20100812
  4. COMPARATOR TRASTUZUMAB [Suspect]
     Dosage: UNK
     Route: 042
     Dates: start: 20100812
  5. BLINDED PLACEBO [Suspect]
     Indication: BREAST CANCER METASTATIC
     Dosage: 10 MG, QD
     Route: 048
     Dates: start: 20100414, end: 20100728
  6. BLINDED NO TREATMENT RECEIVED [Suspect]
     Dosage: 10 MG, QD
     Route: 048
     Dates: start: 20100803
  7. AFINITOR [Suspect]
     Indication: BREAST CANCER METASTATIC
     Dosage: 10 MG, QD
     Route: 048
     Dates: start: 20100414, end: 20100728
  8. COMPARATOR TRASTUZUMAB [Suspect]
     Indication: BREAST CANCER METASTATIC
     Dosage: UNK
     Route: 042
     Dates: start: 20100414, end: 20100728
  9. PACLITAXEL [Suspect]
     Indication: BREAST CANCER METASTATIC
     Dosage: UNK
     Route: 042
     Dates: start: 20100414, end: 20100728
  10. BLINDED NO TREATMENT RECEIVED [Suspect]
     Indication: BREAST CANCER METASTATIC
     Dosage: 10 MG, QD
     Route: 048
     Dates: start: 20100414, end: 20100728

REACTIONS (5)
  - MUSCULAR WEAKNESS [None]
  - DIZZINESS [None]
  - RENAL FAILURE ACUTE [None]
  - ANAEMIA [None]
  - PARAESTHESIA [None]
